FAERS Safety Report 12894203 (Version 4)
Quarter: 2017Q2

REPORT INFORMATION
  Report Type: Spontaneous
  Country: GB (occurrence: GB)
  Receive Date: 20161028
  Receipt Date: 20170414
  Transmission Date: 20170830
  Serious: Yes (Other)
  Sender: FDA-Public Use
  Company Number: GB-TEVA-706813ACC

PATIENT
  Age: 55 Year
  Sex: Male

DRUGS (5)
  1. CAREXIL PROLONGED-RELEASE [Suspect]
     Active Substance: OXYCODONE HYDROCHLORIDE
     Indication: PRODUCT USED FOR UNKNOWN INDICATION
     Dosage: UNKNOWN:FORMULATION REPORTED AS: PROLONGED-RELEASE
     Route: 065
  2. MIRTAZAPINE. [Suspect]
     Active Substance: MIRTAZAPINE
     Indication: PRODUCT USED FOR UNKNOWN INDICATION
     Dosage: UNKNOWN
     Route: 065
  3. LYRICA [Suspect]
     Active Substance: PREGABALIN
     Indication: ANXIETY DISORDER
     Dosage: 75 MG, UNKNOWN
     Route: 065
  4. SANDOZ LTD QUETIAPINE [Suspect]
     Active Substance: QUETIAPINE
     Indication: PRODUCT USED FOR UNKNOWN INDICATION
     Dosage: UNKNOWN
     Route: 065
  5. SANDOZ LTD GABAPENTIN [Suspect]
     Active Substance: GABAPENTIN
     Indication: PRODUCT USED FOR UNKNOWN INDICATION
     Dosage: 2700 MG, (3X900 MG DAILY)
     Route: 065

REACTIONS (6)
  - Cognitive disorder [Unknown]
  - Circumstance or information capable of leading to medication error [Unknown]
  - Limb discomfort [Unknown]
  - Muscle twitching [Unknown]
  - Posture abnormal [Unknown]
  - Urinary retention [Unknown]
